FAERS Safety Report 4392470-2 (Version None)
Quarter: 2004Q3

REPORT INFORMATION
  Report Type: 
  Country: None (occurrence: None)
  Receive Date: 20040702
  Receipt Date: 20040624
  Transmission Date: 20050211
  Serious: Yes (Hospitalization)
  Sender: FDA-Public Use
  Company Number: US-JNJFOC-20040607141

PATIENT
  Age: 39 Year
  Sex: Male

DRUGS (2)
  1. DURAGESIC [Suspect]
     Indication: PAIN
     Dosage: 100 UG/HR, 1 IN 72 HOUR, TRANSDERMAL
     Route: 062
     Dates: start: 20040401
  2. ANTIBIOTIC [Concomitant]

REACTIONS (2)
  - RASH GENERALISED [None]
  - SOMNOLENCE [None]
